FAERS Safety Report 10963437 (Version 1)
Quarter: 2015Q1

REPORT INFORMATION
  Report Type: Spontaneous
  Country: US (occurrence: None)
  Receive Date: 20150326
  Receipt Date: 20150326
  Transmission Date: 20150721
  Serious: Yes (Other)
  Sender: FDA-Public Use
  Company Number: 20152085

PATIENT
  Age: 34 Year
  Sex: Male
  Weight: 65.77 kg

DRUGS (2)
  1. PENTOXIFYLLINE. [Concomitant]
     Active Substance: PENTOXIFYLLINE
  2. XIAFLEX [Suspect]
     Active Substance: COLLAGENASE CLOSTRIDIUM HISTOLYTICUM
     Indication: PEYRONIE^S DISEASE
     Dosage: INTRALESIONAL
     Dates: start: 20141223, end: 20141223

REACTIONS (7)
  - Contusion [None]
  - Penile pain [None]
  - Blood blister [None]
  - Penile haematoma [None]
  - Penis disorder [None]
  - Eschar [None]
  - Sneezing [None]

NARRATIVE: CASE EVENT DATE: 20141226
